FAERS Safety Report 22013115 (Version 1)
Quarter: 2023Q1

REPORT INFORMATION
  Report Type: Spontaneous
  Country: BE (occurrence: BE)
  Receive Date: 20230220
  Receipt Date: 20230220
  Transmission Date: 20230418
  Serious: Yes (Other)
  Sender: FDA-Public Use
  Company Number: BE-009507513-2302BEL002077

PATIENT
  Age: 54 Year
  Sex: Female

DRUGS (4)
  1. CARBOPLATIN [Suspect]
     Active Substance: CARBOPLATIN
     Indication: Non-small cell lung cancer stage IIIB
     Dosage: 2 CYCLES OF CARBOPLATIN PACLITAXEL PEMBRO
  2. PACLITAXEL [Suspect]
     Active Substance: PACLITAXEL
     Indication: Non-small cell lung cancer stage IIIB
     Dosage: 2 CYCLES OF CARBOPLATIN PACLITAXEL PEMBRO
  3. PEMBROLIZUMAB [Suspect]
     Active Substance: PEMBROLIZUMAB
     Indication: Non-small cell lung cancer stage IIIB
     Dosage: 2 CYCLES IN MONOTHERAPY
  4. PEMBROLIZUMAB [Suspect]
     Active Substance: PEMBROLIZUMAB
     Dosage: 2 CYCLES OF CARBOPLATIN PACLITAXEL PEMBROLIZUMAB

REACTIONS (9)
  - Cholestasis [None]
  - Autoimmune cholangitis [None]
  - Fungal oesophagitis [None]
  - Malignant neoplasm progression [None]
  - Neuropathy peripheral [None]
  - Immune-mediated gastritis [None]
  - Myopathy [None]
  - Abdominal pain [None]
  - Oral candidiasis [None]
